FAERS Safety Report 5034231-7 (Version None)
Quarter: 2006Q2

REPORT INFORMATION
  Report Type: 
  Country: None (occurrence: None)
  Receive Date: 20060626
  Receipt Date: 20060614
  Transmission Date: 20061013
  Serious: Yes (Other)
  Sender: FDA-Public Use
  Company Number: PHHO2006NZ09952

PATIENT
  Sex: Female

DRUGS (1)
  1. CLOZARIL [Suspect]
     Indication: SCHIZOPHRENIA
     Route: 048
     Dates: start: 20060110, end: 20060313

REACTIONS (4)
  - BLOOD ELECTROLYTES INCREASED [None]
  - DIABETES INSIPIDUS [None]
  - RENAL FAILURE [None]
  - TREATMENT NONCOMPLIANCE [None]
